FAERS Safety Report 7029272-4 (Version None)
Quarter: 2010Q3

REPORT INFORMATION
  Report Type: 
  Country: None (occurrence: None)
  Receive Date: 20100924
  Receipt Date: 20091223
  Transmission Date: 20110219
  Serious: Yes (Disabling)
  Sender: FDA-Public Use
  Company Number: WAES 0912USA03247

PATIENT
  Age: 61 Year
  Sex: Female

DRUGS (3)
  1. VYTORIN [Suspect]
     Dosage: 10-40 MG/DAILY/PO
     Route: 048
     Dates: end: 20090301
  2. DARVOCET [Concomitant]
  3. XANAX [Concomitant]

REACTIONS (1)
  - ARTHRALGIA [None]
